FAERS Safety Report 15304781 (Version 1)
Quarter: 2018Q3

REPORT INFORMATION
  Report Type: Spontaneous
  Country: US (occurrence: US)
  Receive Date: 20180821
  Receipt Date: 20180821
  Transmission Date: 20181010
  Serious: Yes (Other)
  Sender: FDA-Public Use
  Company Number: US-BRISTOL-MYERS SQUIBB COMPANY-BMS-2018-074887

PATIENT
  Age: 68 Year
  Sex: Female

DRUGS (1)
  1. COUMADIN [Suspect]
     Active Substance: WARFARIN SODIUM
     Indication: PRODUCT USED FOR UNKNOWN INDICATION
     Dosage: ALTERNATING 4 MG AND 2 MG DOSES
     Route: 065

REACTIONS (6)
  - Metrorrhagia [Unknown]
  - Rheumatoid arthritis [Unknown]
  - Aortic valve disease [Unknown]
  - Diabetes mellitus [Unknown]
  - Haemorrhage [Unknown]
  - Dizziness [Unknown]

NARRATIVE: CASE EVENT DATE: 20180722
